FAERS Safety Report 16671468 (Version 1)
Quarter: 2019Q3

REPORT INFORMATION
  Report Type: Spontaneous
  Country: US (occurrence: US)
  Receive Date: 20190806
  Receipt Date: 20190806
  Transmission Date: 20191004
  Serious: No
  Sender: FDA-Public Use
  Company Number: US-CELGENEUS-USA-20190710877

PATIENT
  Age: 81 Year
  Sex: Male

DRUGS (1)
  1. OTEZLA [Suspect]
     Active Substance: APREMILAST
     Indication: PSORIASIS
     Dosage: 60 MILLIGRAM
     Route: 048
     Dates: start: 20190720, end: 20190727

REACTIONS (3)
  - Diarrhoea [Unknown]
  - Cough [Unknown]
  - Depression [Unknown]

NARRATIVE: CASE EVENT DATE: 201907
